FAERS Safety Report 13676703 (Version 7)
Quarter: 2021Q2

REPORT INFORMATION
  Report Type: Spontaneous
  Country: US (occurrence: US)
  Receive Date: 20170622
  Receipt Date: 20210407
  Transmission Date: 20210716
  Serious: No
  Sender: FDA-Public Use
  Company Number: US-PFIZER INC-2017269631

PATIENT
  Age: 49 Year
  Sex: Female
  Weight: 48.99 kg

DRUGS (2)
  1. XELJANZ [Suspect]
     Active Substance: TOFACITINIB CITRATE
     Indication: RHEUMATOID ARTHRITIS
     Dosage: 5 MG, 2X/DAY
     Route: 048
  2. XELJANZ [Suspect]
     Active Substance: TOFACITINIB CITRATE
     Dosage: 5 MG

REACTIONS (11)
  - Eye disorder [Unknown]
  - Pyrexia [Unknown]
  - Bronchitis [Unknown]
  - Illness [Unknown]
  - Peripheral swelling [Unknown]
  - Influenza [Recovered/Resolved with Sequelae]
  - Pain [Unknown]
  - Nasal congestion [Unknown]
  - Cough [Unknown]
  - Dyspnoea [Unknown]
  - Fatigue [Unknown]
